FAERS Safety Report 7434007-7 (Version None)
Quarter: 2011Q2

REPORT INFORMATION
  Report Type: 
  Country: None (occurrence: None)
  Receive Date: 20110425
  Receipt Date: 20101214
  Transmission Date: 20111010
  Serious: Yes (Hospitalization)
  Sender: FDA-Public Use
  Company Number: US-BAYER-201034563NA

PATIENT
  Age: 26 Year
  Sex: Female
  Weight: 82.993 kg

DRUGS (3)
  1. YAZ [Suspect]
     Indication: PRODUCT USED FOR UNKNOWN INDICATION
     Dosage: FREQUENCY: CONTINUOUS
     Route: 015
     Dates: start: 20090801, end: 20091201
  2. PROZAC [Concomitant]
     Dosage: 20 MG, QD
  3. XANAX [Concomitant]
     Dosage: 0.25 MG, PRN

REACTIONS (6)
  - ASTHENIA [None]
  - DYSPNOEA [None]
  - PULMONARY EMBOLISM [None]
  - INSOMNIA [None]
  - PAIN [None]
  - EMOTIONAL DISTRESS [None]
